FAERS Safety Report 8510407 (Version 2)
Quarter: 2012Q4

REPORT INFORMATION
  Report Type: Report from Study
  Country: ES (occurrence: ES)
  Receive Date: 20120411
  Receipt Date: 20121018
  Transmission Date: 20130627
  Serious: Yes (Hospitalization)
  Sender: FDA-Public Use
  Company Number: ES-BAXTER-2012BH004560

PATIENT
  Age: 64 Year
  Sex: Female
  Weight: 55.5 kg

DRUGS (40)
  1. GENOXAL [Suspect]
     Indication: DIFFUSE LARGE B-CELL LYMPHOMA
     Route: 042
     Dates: start: 20111222
  2. GENOXAL [Suspect]
     Route: 042
     Dates: start: 20120417
  3. DOXORUBICIN [Suspect]
     Indication: DIFFUSE LARGE B-CELL LYMPHOMA
     Route: 042
     Dates: start: 20111222
  4. DOXORUBICIN [Suspect]
     Route: 042
     Dates: start: 20120417
  5. VINCRISTINE [Suspect]
     Indication: DIFFUSE LARGE B-CELL LYMPHOMA
     Route: 040
     Dates: start: 20111222
  6. VINCRISTINE [Suspect]
     Route: 040
     Dates: start: 20120417
  7. PREDNISONE [Suspect]
     Indication: DIFFUSE LARGE B-CELL LYMPHOMA
     Route: 048
     Dates: start: 20111221
  8. PREDNISONE [Suspect]
     Route: 048
     Dates: start: 20120421
  9. LEVOTHYROXINE [Concomitant]
     Indication: THYROIDECTOMY
     Route: 065
  10. OMEPRAZOLE [Concomitant]
     Indication: CHRONIC GASTRITIS
     Route: 065
  11. MAGALDRATE [Concomitant]
     Indication: CHRONIC GASTRITIS
     Route: 065
  12. ALLOPURINOL [Concomitant]
     Indication: TUMOR LYSIS SYNDROME
     Route: 065
     Dates: start: 20111221, end: 20120421
  13. DEXCHLORPHENIRAMINE [Concomitant]
     Indication: PREMEDICATION
     Route: 065
     Dates: start: 20111221, end: 20120606
  14. PARACETAMOL [Concomitant]
     Indication: LUMBAR PAIN
     Route: 065
     Dates: start: 20111221, end: 20120606
  15. PARACETAMOL [Concomitant]
     Route: 065
     Dates: start: 20120429, end: 20120429
  16. PARACETAMOL [Concomitant]
     Route: 065
     Dates: start: 20120504, end: 20120504
  17. GRANISETRON [Concomitant]
     Indication: PREMEDICATION
     Route: 065
     Dates: start: 20111222, end: 20120417
  18. CIPROFLOXACIN [Concomitant]
     Indication: ACUTE GASTROENTERITIS
     Route: 065
     Dates: start: 20120219
  19. CIPROFLOXACIN [Concomitant]
     Route: 065
     Dates: start: 20120405, end: 20120409
  20. FILGRASTIM [Concomitant]
     Indication: NEUTROPENIA
     Route: 065
     Dates: start: 20120328, end: 20120403
  21. FILGRASTIM [Concomitant]
     Route: 065
     Dates: start: 20120310, end: 20120310
  22. FILGRASTIM [Concomitant]
     Route: 065
     Dates: start: 20120425, end: 20120426
  23. TAZOCEL [Concomitant]
     Indication: NEUTROPENIA
     Route: 065
     Dates: start: 20120328, end: 20120404
  24. TAZOCEL [Concomitant]
     Route: 065
     Dates: start: 20120425, end: 20120504
  25. FLUCONAZOLE [Concomitant]
     Indication: NEUTROPENIA
     Route: 065
     Dates: start: 20120328, end: 20120404
  26. FLUCONAZOLE [Concomitant]
     Indication: FEVER
  27. LEVOFLOXACIN [Concomitant]
     Indication: NEUTROPENIA
     Route: 065
     Dates: start: 20120328, end: 20120408
  28. LEVOFLOXACIN [Concomitant]
     Indication: FEVER
     Route: 065
     Dates: start: 20120425, end: 20120508
  29. METRONIDAZOLE [Concomitant]
     Indication: NEUTROPENIA
     Route: 065
     Dates: start: 20120405, end: 20120409
  30. METRONIDAZOLE [Concomitant]
     Indication: FEVER
  31. METHOTREXATE [Concomitant]
     Indication: PROPHYLAXIS
     Route: 065
     Dates: start: 20120229, end: 20120229
  32. AMIKACIN [Concomitant]
     Indication: FEVER
     Route: 065
     Dates: start: 20120425, end: 20120427
  33. AMIKACIN [Concomitant]
     Route: 065
     Dates: start: 20120425, end: 20120502
  34. AMIKACIN [Concomitant]
     Route: 065
     Dates: start: 20120229, end: 20120404
  35. CIPROFLOXACIN [Concomitant]
     Indication: NEUTROPENIA
     Route: 065
     Dates: start: 20120405, end: 20120405
  36. CIPROFLOXACIN [Concomitant]
     Indication: FEVER
  37. ADOLONTA [Concomitant]
     Indication: LUMBAR PAIN
     Route: 065
     Dates: start: 20120425, end: 20120425
  38. ENANTYUM [Concomitant]
     Indication: LUMBAR PAIN
     Route: 065
     Dates: start: 20120504
  39. MAGNESIUM [Concomitant]
     Indication: DRUG USE FOR UNKNOWN INDICATION
     Route: 065
     Dates: start: 20120504, end: 20120515
  40. NORADRENALINE [Concomitant]
     Indication: HYPOTENSION
     Route: 065
     Dates: start: 20120425, end: 20120426

REACTIONS (3)
  - Neutropenia [Recovered/Resolved]
  - Pyrexia [Recovered/Resolved]
  - Respiratory tract infection [Recovered/Resolved]
